FAERS Safety Report 20878215 (Version 1)
Quarter: 2022Q2

REPORT INFORMATION
  Report Type: Spontaneous
  Country: US (occurrence: US)
  Receive Date: 20220526
  Receipt Date: 20220526
  Transmission Date: 20220720
  Serious: Yes (Hospitalization, Other)
  Sender: FDA-Public Use
  Company Number: US-PFIZER INC-202200727219

PATIENT
  Age: 16 Year
  Sex: Male

DRUGS (34)
  1. LEVOFLOXACIN [Suspect]
     Active Substance: LEVOFLOXACIN
     Indication: Chest pain
     Dosage: UNK
  2. LEVOFLOXACIN [Suspect]
     Active Substance: LEVOFLOXACIN
     Indication: Hypoxia
  3. PREDNISONE [Suspect]
     Active Substance: PREDNISONE
     Indication: Chest pain
     Dosage: 60 MG
  4. PREDNISONE [Suspect]
     Active Substance: PREDNISONE
     Indication: Hypoxia
     Dosage: 60 MG, DAILY (6-WEEK TAPER)
     Route: 048
  5. PREDNISONE [Suspect]
     Active Substance: PREDNISONE
     Indication: Cough
  6. PREDNISONE [Suspect]
     Active Substance: PREDNISONE
     Indication: Wheezing
  7. ISONIAZID [Suspect]
     Active Substance: ISONIAZID
     Indication: Hypoxia
     Dosage: UNK
  8. ISONIAZID [Suspect]
     Active Substance: ISONIAZID
     Indication: Wheezing
  9. ISONIAZID [Suspect]
     Active Substance: ISONIAZID
     Indication: Cough
  10. ISONIAZID [Suspect]
     Active Substance: ISONIAZID
     Indication: Vomiting
  11. ISONIAZID [Suspect]
     Active Substance: ISONIAZID
     Indication: Weight decreased
  12. ISONIAZID [Suspect]
     Active Substance: ISONIAZID
     Indication: Diarrhoea
  13. ISONIAZID [Suspect]
     Active Substance: ISONIAZID
     Indication: Tuberculosis
  14. RIFAMPIN [Suspect]
     Active Substance: RIFAMPIN
     Indication: Hypoxia
     Dosage: UNK
  15. RIFAMPIN [Suspect]
     Active Substance: RIFAMPIN
     Indication: Wheezing
  16. RIFAMPIN [Suspect]
     Active Substance: RIFAMPIN
     Indication: Cough
  17. RIFAMPIN [Suspect]
     Active Substance: RIFAMPIN
     Indication: Vomiting
  18. RIFAMPIN [Suspect]
     Active Substance: RIFAMPIN
     Indication: Weight decreased
  19. RIFAMPIN [Suspect]
     Active Substance: RIFAMPIN
     Indication: Diarrhoea
  20. RIFAMPIN [Suspect]
     Active Substance: RIFAMPIN
     Indication: Tuberculosis
  21. ETHAMBUTOL [Suspect]
     Active Substance: ETHAMBUTOL HYDROCHLORIDE
     Indication: Hypoxia
     Dosage: UNK
  22. ETHAMBUTOL [Suspect]
     Active Substance: ETHAMBUTOL HYDROCHLORIDE
     Indication: Wheezing
  23. ETHAMBUTOL [Suspect]
     Active Substance: ETHAMBUTOL HYDROCHLORIDE
     Indication: Cough
  24. ETHAMBUTOL [Suspect]
     Active Substance: ETHAMBUTOL HYDROCHLORIDE
     Indication: Vomiting
  25. ETHAMBUTOL [Suspect]
     Active Substance: ETHAMBUTOL HYDROCHLORIDE
     Indication: Weight decreased
  26. ETHAMBUTOL [Suspect]
     Active Substance: ETHAMBUTOL HYDROCHLORIDE
     Indication: Diarrhoea
  27. ETHAMBUTOL [Suspect]
     Active Substance: ETHAMBUTOL HYDROCHLORIDE
     Indication: Tuberculosis
  28. PYRAZINAMIDE [Suspect]
     Active Substance: PYRAZINAMIDE
     Indication: Hypoxia
     Dosage: UNK
  29. PYRAZINAMIDE [Suspect]
     Active Substance: PYRAZINAMIDE
     Indication: Wheezing
  30. PYRAZINAMIDE [Suspect]
     Active Substance: PYRAZINAMIDE
     Indication: Cough
  31. PYRAZINAMIDE [Suspect]
     Active Substance: PYRAZINAMIDE
     Indication: Vomiting
  32. PYRAZINAMIDE [Suspect]
     Active Substance: PYRAZINAMIDE
     Indication: Weight decreased
  33. PYRAZINAMIDE [Suspect]
     Active Substance: PYRAZINAMIDE
     Indication: Diarrhoea
  34. PYRAZINAMIDE [Suspect]
     Active Substance: PYRAZINAMIDE
     Indication: Tuberculosis

REACTIONS (3)
  - Drug ineffective [Unknown]
  - Eosinophilia [Unknown]
  - Fibrosis [Unknown]
